FAERS Safety Report 18727101 (Version 3)
Quarter: 2023Q1

REPORT INFORMATION
  Report Type: Spontaneous
  Country: US (occurrence: None)
  Receive Date: 20210111
  Receipt Date: 20230108
  Transmission Date: 20230418
  Serious: No
  Sender: FDA-Public Use
  Company Number: US-ROCHE-2611696

PATIENT
  Sex: Male

DRUGS (9)
  1. HEMLIBRA [Suspect]
     Active Substance: EMICIZUMAB-KXWH
     Indication: Factor VIII deficiency
     Route: 058
     Dates: start: 201910
  2. HEMLIBRA [Suspect]
     Active Substance: EMICIZUMAB-KXWH
     Dosage: 60 MG/ 0.4 ML,VIAL
     Route: 058
     Dates: start: 201910
  3. HEMLIBRA [Suspect]
     Active Substance: EMICIZUMAB-KXWH
     Dosage: 60 MG/ 0.4 ML, INJECT HEMLIBRA 180 MG (60 MG X3), ONGOING: YES
     Route: 058
     Dates: start: 20200919
  4. HEMLIBRA [Suspect]
     Active Substance: EMICIZUMAB-KXWH
     Dosage: 60MG/0.4ML , MAINTENANCE DOSE: INJECT HEMLIBRA 180MG (60MGX3) SUBCUTANEOUSLY EVERY WEEK
     Route: 058
     Dates: start: 201910
  5. HEMLIBRA [Suspect]
     Active Substance: EMICIZUMAB-KXWH
     Dosage: INJECT HEMLIBRA 180MG(60M G X3) SUBCUTANEOUSLY EVERY WEEK
     Route: 058
     Dates: start: 201910
  6. OMEPRAZOLE [Concomitant]
     Active Substance: OMEPRAZOLE
     Route: 065
  7. MELOXICAM [Concomitant]
     Active Substance: MELOXICAM
     Route: 065
  8. LYRICA [Concomitant]
     Active Substance: PREGABALIN
     Route: 065
  9. XYNTHA [Concomitant]
     Active Substance: ANTIHEMOPHILIC FACTOR, HUMAN RECOMBINANT RESIDUES 743-1636 DELETED
     Indication: Factor VIII deficiency
     Dosage: NFUSE ~ 2170 UNITS (+/-10%) NTRAVENOUSLY AS NEEDED FOR MILD BLEEDS. INFUSE ~ 4340 UNITS (+/-10%)
     Route: 042
     Dates: start: 201902

REACTIONS (4)
  - Haemorrhage [Unknown]
  - Haemorrhage [Unknown]
  - Fall [Unknown]
  - Haemorrhage [Unknown]
